FAERS Safety Report 11893864 (Version 1)
Quarter: 2016Q1

REPORT INFORMATION
  Report Type: Spontaneous
  Country: AT (occurrence: AT)
  Receive Date: 20160107
  Receipt Date: 20160107
  Transmission Date: 20160526
  Serious: Yes (Hospitalization)
  Sender: FDA-Public Use
  Company Number: AT-AMGEN-AUTSP2015141037

PATIENT
  Sex: Female

DRUGS (2)
  1. ENBREL [Suspect]
     Active Substance: ETANERCEPT
     Indication: RHEUMATOID ARTHRITIS
     Dosage: 25 MG, 2XUNK
     Route: 058
     Dates: end: 201509
  2. EBETREXAT                          /00113801/ [Suspect]
     Active Substance: METHOTREXATE SODIUM
     Indication: RHEUMATOID ARTHRITIS
     Dosage: 15 MG, WEEKLY
     Route: 048
     Dates: end: 201509

REACTIONS (3)
  - Hyponatraemia [Not Recovered/Not Resolved]
  - Gastric ulcer [Not Recovered/Not Resolved]
  - Erysipelas [Not Recovered/Not Resolved]

NARRATIVE: CASE EVENT DATE: 2015
